FAERS Safety Report 23638026 (Version 1)
Quarter: 2024Q1

REPORT INFORMATION
  Report Type: Spontaneous
  Country: US (occurrence: US)
  Receive Date: 20240315
  Receipt Date: 20240315
  Transmission Date: 20240410
  Serious: No
  Sender: FDA-Public Use
  Company Number: US-LANTHEUS MEDICAL IMAGING-LMI-2024-00072

PATIENT
  Sex: Female

DRUGS (1)
  1. PYLARIFY [Suspect]
     Active Substance: PIFLUFOLASTAT F-18
     Indication: Product used for unknown indication
     Dosage: UNK
     Dates: start: 20240117, end: 20240117

REACTIONS (3)
  - Product dispensing error [Unknown]
  - Off label use [Unknown]
  - Wrong product administered [Unknown]

NARRATIVE: CASE EVENT DATE: 20240117
